FAERS Safety Report 22323310 (Version 2)
Quarter: 2023Q2

REPORT INFORMATION
  Report Type: Other
  Country: US (occurrence: US)
  Receive Date: 20230516
  Receipt Date: 20230517
  Transmission Date: 20230721
  Serious: No
  Sender: FDA-Public Use
  Company Number: US-TRAVERE-2023TVT00090

PATIENT
  Age: 46 Year
  Sex: Female

DRUGS (2)
  1. FILSPARI [Suspect]
     Active Substance: SPARSENTAN
     Indication: IgA nephropathy
     Dosage: 200 RE-021
     Route: 048
     Dates: start: 20230324
  2. FILSPARI [Suspect]
     Active Substance: SPARSENTAN
     Dosage: 400 RE-021
     Route: 048
     Dates: start: 20230407

REACTIONS (3)
  - Oedema peripheral [Not Recovered/Not Resolved]
  - Oropharyngeal pain [Recovered/Resolved]
  - Muscle spasms [Not Recovered/Not Resolved]
